FAERS Safety Report 14103701 (Version 1)
Quarter: 2017Q4

REPORT INFORMATION
  Report Type: Spontaneous
  Country: US (occurrence: US)
  Receive Date: 20171018
  Receipt Date: 20171018
  Transmission Date: 20180321
  Serious: No
  Sender: FDA-Public Use
  Company Number: US-AMGEN-USASP2017087099

PATIENT
  Age: 72 Year
  Sex: Female

DRUGS (1)
  1. PROLIA [Suspect]
     Active Substance: DENOSUMAB
     Indication: OSTEOPOROSIS POSTMENOPAUSAL
     Dosage: 60 MG/ML
     Route: 065
     Dates: start: 2015

REACTIONS (6)
  - Pain in jaw [Not Recovered/Not Resolved]
  - Mass [Not Recovered/Not Resolved]
  - Tenderness [Not Recovered/Not Resolved]
  - Tooth loss [Not Recovered/Not Resolved]
  - Anaemia [Unknown]
  - Swelling face [Not Recovered/Not Resolved]
